FAERS Safety Report 6239903-4 (Version None)
Quarter: 2009Q2

REPORT INFORMATION
  Report Type: 
  Country: None (occurrence: None)
  Receive Date: 20090623
  Receipt Date: 20070410
  Transmission Date: 20091009
  Serious: Yes (Other)
  Sender: FDA-Public Use
  Company Number: US-ASTRAZENECA-2006UW00434

PATIENT
  Age: 567 Month
  Sex: Male
  Weight: 105.7 kg

DRUGS (37)
  1. SEROQUEL [Suspect]
     Indication: SCHIZOPHRENIA
     Route: 048
     Dates: start: 20010101, end: 20040101
  2. SEROQUEL [Suspect]
     Indication: ANXIETY
     Route: 048
     Dates: start: 20010101, end: 20040101
  3. SEROQUEL [Suspect]
     Indication: HALLUCINATION
     Route: 048
     Dates: start: 20010101, end: 20040101
  4. SEROQUEL [Suspect]
     Indication: INSOMNIA
     Route: 048
     Dates: start: 20010101, end: 20040101
  5. SEROQUEL [Suspect]
     Dosage: 200 MG TO 400 MG IN FLUCTUATING DOSE
     Route: 048
     Dates: start: 20000705, end: 20010103
  6. SEROQUEL [Suspect]
     Dosage: 200 MG TO 400 MG IN FLUCTUATING DOSE
     Route: 048
     Dates: start: 20000705, end: 20010103
  7. SEROQUEL [Suspect]
     Dosage: 200 MG TO 400 MG IN FLUCTUATING DOSE
     Route: 048
     Dates: start: 20000705, end: 20010103
  8. SEROQUEL [Suspect]
     Dosage: 200 MG TO 400 MG IN FLUCTUATING DOSE
     Route: 048
     Dates: start: 20000705, end: 20010103
  9. SEROQUEL [Suspect]
     Dosage: 50 MG TO 700 MG IN INCREASING DOSE
     Route: 048
     Dates: start: 20010103, end: 20010907
  10. SEROQUEL [Suspect]
     Dosage: 50 MG TO 700 MG IN INCREASING DOSE
     Route: 048
     Dates: start: 20010103, end: 20010907
  11. SEROQUEL [Suspect]
     Dosage: 50 MG TO 700 MG IN INCREASING DOSE
     Route: 048
     Dates: start: 20010103, end: 20010907
  12. SEROQUEL [Suspect]
     Dosage: 50 MG TO 700 MG IN INCREASING DOSE
     Route: 048
     Dates: start: 20010103, end: 20010907
  13. SEROQUEL [Suspect]
     Dosage: 500 MG TO 1100 MG IN FLUCTUATING DOSE
     Route: 048
     Dates: start: 20010907, end: 20030530
  14. SEROQUEL [Suspect]
     Dosage: 500 MG TO 1100 MG IN FLUCTUATING DOSE
     Route: 048
     Dates: start: 20010907, end: 20030530
  15. SEROQUEL [Suspect]
     Dosage: 500 MG TO 1100 MG IN FLUCTUATING DOSE
     Route: 048
     Dates: start: 20010907, end: 20030530
  16. SEROQUEL [Suspect]
     Dosage: 500 MG TO 1100 MG IN FLUCTUATING DOSE
     Route: 048
     Dates: start: 20010907, end: 20030530
  17. SEROQUEL [Suspect]
     Dosage: 800 MG-1100 MG IN INCREASING DOSE
     Route: 048
     Dates: start: 20030530, end: 20040121
  18. SEROQUEL [Suspect]
     Dosage: 800 MG-1100 MG IN INCREASING DOSE
     Route: 048
     Dates: start: 20030530, end: 20040121
  19. SEROQUEL [Suspect]
     Dosage: 800 MG-1100 MG IN INCREASING DOSE
     Route: 048
     Dates: start: 20030530, end: 20040121
  20. SEROQUEL [Suspect]
     Dosage: 800 MG-1100 MG IN INCREASING DOSE
     Route: 048
     Dates: start: 20030530, end: 20040121
  21. SEROQUEL [Suspect]
     Dosage: 900 MG-200 MG IN DECREASING DOSE
     Route: 048
     Dates: start: 20040121, end: 20041012
  22. SEROQUEL [Suspect]
     Dosage: 900 MG-200 MG IN DECREASING DOSE
     Route: 048
     Dates: start: 20040121, end: 20041012
  23. SEROQUEL [Suspect]
     Dosage: 900 MG-200 MG IN DECREASING DOSE
     Route: 048
     Dates: start: 20040121, end: 20041012
  24. SEROQUEL [Suspect]
     Dosage: 900 MG-200 MG IN DECREASING DOSE
     Route: 048
     Dates: start: 20040121, end: 20041012
  25. SEROQUEL [Suspect]
     Route: 048
     Dates: start: 20041012, end: 20041122
  26. SEROQUEL [Suspect]
     Route: 048
     Dates: start: 20041012, end: 20041122
  27. SEROQUEL [Suspect]
     Route: 048
     Dates: start: 20041012, end: 20041122
  28. SEROQUEL [Suspect]
     Route: 048
     Dates: start: 20041012, end: 20041122
  29. ABILIFY [Concomitant]
     Dates: start: 20040101
  30. RISPERDAL [Concomitant]
     Dates: start: 20030818, end: 20030101
  31. EFFEXOR [Concomitant]
     Dosage: 75 MG - 225 MG
     Route: 048
     Dates: start: 19990329
  32. TEGRETOL [Concomitant]
     Dosage: 100 MG - 1000 MG
     Dates: start: 19951031
  33. ATIVAN [Concomitant]
     Dosage: 1 MG-3 MG
     Route: 048
     Dates: start: 19951031
  34. GEODON [Concomitant]
     Dosage: 80 MG-240 MG
     Route: 048
     Dates: start: 20010629
  35. ZOCOR [Concomitant]
     Route: 048
     Dates: start: 20020214
  36. LOPID [Concomitant]
     Route: 048
     Dates: start: 20030724
  37. DARVOCET [Concomitant]
     Route: 048
     Dates: start: 19991012

REACTIONS (5)
  - BIOPSY LUNG [None]
  - BLOOD GLUCOSE INCREASED [None]
  - DIABETES MELLITUS [None]
  - DIABETIC COMPLICATION [None]
  - LUNG NEOPLASM MALIGNANT [None]
